FAERS Safety Report 18448092 (Version 2)
Quarter: 2020Q4

REPORT INFORMATION
  Report Type: Spontaneous
  Country: PT (occurrence: PT)
  Receive Date: 20201031
  Receipt Date: 20201113
  Transmission Date: 20210114
  Serious: Yes (Death, Hospitalization, Other)
  Sender: FDA-Public Use
  Company Number: PT-AUROBINDO-AUR-APL-2020-054668

PATIENT
  Age: 68 Year
  Sex: Male

DRUGS (11)
  1. VANCOMYCIN [Suspect]
     Active Substance: VANCOMYCIN
     Indication: FUNGAL ENDOCARDITIS
     Dosage: UNK
     Route: 065
  2. GENTAMYCIN [Suspect]
     Active Substance: GENTAMICIN
     Indication: PERITONITIS BACTERIAL
     Dosage: UNK
     Route: 065
  3. CEFTRIAXONE. [Suspect]
     Active Substance: CEFTRIAXONE
     Indication: PERITONITIS BACTERIAL
     Dosage: UNK
     Route: 065
  4. GENTAMYCIN [Suspect]
     Active Substance: GENTAMICIN
     Indication: FUNGAL ENDOCARDITIS
  5. ANIDULAFUNGIN [Concomitant]
     Active Substance: ANIDULAFUNGIN
     Indication: FUNGAL ENDOCARDITIS
     Dosage: UNK
     Route: 065
  6. PIPERACILIN/TAZOBACTAM [Suspect]
     Active Substance: PIPERACILLIN SODIUM\TAZOBACTAM SODIUM
     Indication: PERITONITIS BACTERIAL
     Dosage: UNK
     Route: 065
  7. PIPERACILIN/TAZOBACTAM [Suspect]
     Active Substance: PIPERACILLIN SODIUM\TAZOBACTAM SODIUM
     Indication: PYREXIA
     Dosage: UNK
     Route: 065
  8. PIPERACILIN/TAZOBACTAM [Suspect]
     Active Substance: PIPERACILLIN SODIUM\TAZOBACTAM SODIUM
     Indication: FUNGAL ENDOCARDITIS
  9. CEFTRIAXONE. [Suspect]
     Active Substance: CEFTRIAXONE
     Indication: PYREXIA
  10. CEFTRIAXONE. [Suspect]
     Active Substance: CEFTRIAXONE
     Indication: FUNGAL ENDOCARDITIS
  11. GENTAMYCIN [Suspect]
     Active Substance: GENTAMICIN
     Indication: PYREXIA

REACTIONS (2)
  - Acute kidney injury [Fatal]
  - Drug ineffective [Unknown]
